FAERS Safety Report 13434070 (Version 2)
Quarter: 2018Q2

REPORT INFORMATION
  Report Type: Report from Study
  Country: DE (occurrence: DE)
  Receive Date: 20170413
  Receipt Date: 20180626
  Transmission Date: 20180711
  Serious: Yes (Other)
  Sender: FDA-Public Use
  Company Number: DE-ADIENNEP-2017AD000075

PATIENT
  Sex: Female
  Weight: 95 kg

DRUGS (2)
  1. TEPADINA [Suspect]
     Active Substance: THIOTEPA
     Indication: CHEMOTHERAPY
     Dates: start: 20161007
  2. CARMUSTINE [Suspect]
     Active Substance: CARMUSTINE
     Indication: CHEMOTHERAPY

REACTIONS (5)
  - Febrile neutropenia [Recovered/Resolved]
  - Pain [Recovering/Resolving]
  - Leukopenia [Recovered/Resolved]
  - Thrombocytopenia [Recovering/Resolving]
  - Mucosal inflammation [Recovering/Resolving]

NARRATIVE: CASE EVENT DATE: 20161015
